FAERS Safety Report 7161527-5 (Version None)
Quarter: 2010Q4

REPORT INFORMATION
  Report Type: 
  Country: None (occurrence: None)
  Receive Date: 20101215
  Receipt Date: 20101211
  Transmission Date: 20110411
  Serious: Yes (Hospitalization)
  Sender: FDA-Public Use
  Company Number: US-PFIZER INC-2010169513

PATIENT
  Sex: Female
  Weight: 73.469 kg

DRUGS (5)
  1. CELEBREX [Suspect]
     Indication: ARTHRITIS
     Dosage: 200 MG, DAILY
     Route: 048
     Dates: start: 20101101, end: 20101117
  2. CELEBREX [Suspect]
     Indication: OSTEOPOROSIS
  3. ACETYLSALICYLIC ACID [Concomitant]
     Indication: ANTICOAGULANT THERAPY
     Dosage: UNK
  4. IRON [Concomitant]
     Dosage: UNK
  5. DOCUSATE [Concomitant]
     Indication: FAECES HARD
     Dosage: UNK

REACTIONS (2)
  - ARTHRITIS [None]
  - SKIN REACTION [None]
